FAERS Safety Report 18337329 (Version 3)
Quarter: 2020Q4

REPORT INFORMATION
  Report Type: Spontaneous
  Country: JP (occurrence: JP)
  Receive Date: 20201002
  Receipt Date: 20201112
  Transmission Date: 20210113
  Serious: Yes (Hospitalization, Other)
  Sender: FDA-Public Use
  Company Number: JP-SAKK-2020SA265854AA

PATIENT

DRUGS (15)
  1. METOCLOPRAMIDE. [Concomitant]
     Active Substance: METOCLOPRAMIDE
     Indication: NAUSEA
     Dosage: 10 DOSES FOR NAUSEA/QUEASY (AS NEEDED)
     Route: 065
  2. PARMODIA [Concomitant]
     Active Substance: PEMAFIBRATE
     Indication: PRODUCT USED FOR UNKNOWN INDICATION
     Dosage: 0.1 MG, BID, AFTER BREAKFAST AND DINNER
     Route: 065
     Dates: start: 20200818, end: 20200908
  3. PARMODIA [Concomitant]
     Active Substance: PEMAFIBRATE
     Dosage: 1 DF, BID, AFTER BREAKFAST AND DINNER
     Route: 065
     Dates: start: 20200914
  4. LOXOPROFEN NA [Concomitant]
     Active Substance: LOXOPROFEN SODIUM
     Indication: PAIN
     Dosage: 8 DOSES FOR PAIN (AS NEEDED)
     Route: 065
     Dates: start: 20200707
  5. INSULIN LISPRO [Suspect]
     Active Substance: INSULIN LISPRO
     Indication: PANCREATOGENOUS DIABETES
     Dosage: UNK
     Route: 058
     Dates: start: 20200904, end: 20200907
  6. RABEPRAZOLE NA [Concomitant]
     Active Substance: RABEPRAZOLE SODIUM
     Indication: PRODUCT USED FOR UNKNOWN INDICATION
     Dosage: 10 MG, QD, AT BEDTIME
     Route: 065
     Dates: start: 20200707
  7. METOCLOPRAMIDE. [Concomitant]
     Active Substance: METOCLOPRAMIDE
     Indication: NAUSEA
  8. LIPACREON [Concomitant]
     Active Substance: PANCRELIPASE
     Indication: PRODUCT USED FOR UNKNOWN INDICATION
     Dosage: 600 MG, TID, AFTER BREAKFAST, LUNCH, AND DINNER
     Route: 065
     Dates: start: 20200707
  9. ROSUVASTATIN OD [Concomitant]
     Indication: PRODUCT USED FOR UNKNOWN INDICATION
     Dosage: 5 MG, QD, AFTER DINNER
     Route: 065
     Dates: start: 20200818, end: 20200910
  10. NAUZELIN [Concomitant]
     Active Substance: DOMPERIDONE
     Indication: NAUSEA
     Dosage: 2 DOSES FOR NAUSEA/QUEASY (AS NEEDED)
     Route: 065
     Dates: start: 20200707
  11. INSULIN LISPRO BS INJECTION SOLOSTAR HU [SANOFI] [Suspect]
     Active Substance: INSULIN LISPRO
     Indication: PANCREATOGENOUS DIABETES
     Dosage: UNK
     Route: 058
     Dates: start: 20200818, end: 20200903
  12. NATEGLINIDE. [Concomitant]
     Active Substance: NATEGLINIDE
     Indication: PRODUCT USED FOR UNKNOWN INDICATION
     Dosage: 90 MG, QD, IMMEDIATELY BEFORE LUNCH
     Route: 065
     Dates: start: 20200715, end: 20200909
  13. CAMOSTAT MESILATE [Concomitant]
     Active Substance: CAMOSTAT MESYLATE
     Indication: PRODUCT USED FOR UNKNOWN INDICATION
     Dosage: 200 MG, TID, AFTER BREAKFAST, LUNCH, AND DINNER
     Route: 065
     Dates: start: 20200707
  14. BERIZYM [CELLULASE;DIASTASE;LIPASE;PANCREATIN] [Concomitant]
     Indication: PRODUCT USED FOR UNKNOWN INDICATION
     Dosage: 1 G, TID ,  AFTER BREAKFAST, LUNCH, AND DINNER
     Route: 065
     Dates: start: 20200707
  15. NAUZELIN [Concomitant]
     Active Substance: DOMPERIDONE
     Indication: NAUSEA

REACTIONS (2)
  - Nausea [Recovering/Resolving]
  - Vomiting [Recovering/Resolving]

NARRATIVE: CASE EVENT DATE: 20200903
